FAERS Safety Report 10078258 (Version 1)
Quarter: 2014Q2

REPORT INFORMATION
  Report Type: Report from Study
  Country: US (occurrence: US)
  Receive Date: 20140415
  Receipt Date: 20140415
  Transmission Date: 20141212
  Serious: Yes (Hospitalization, Other)
  Sender: FDA-Public Use
  Company Number: US-ROCHE-1376853

PATIENT
  Age: 8 Year
  Sex: Female

DRUGS (3)
  1. NUTROPIN AQ [Suspect]
     Indication: BODY HEIGHT BELOW NORMAL
     Dosage: 0.5 MG ALTERNATING WITH 0.4 MG
     Route: 058
  2. LEVOTHYROXINE [Concomitant]
     Route: 048
  3. SINGULAIR [Concomitant]
     Route: 048

REACTIONS (3)
  - Diabetes mellitus [Unknown]
  - Insulin-like growth factor increased [Unknown]
  - Breast atrophy [Unknown]
